FAERS Safety Report 20429461 (Version 1)
Quarter: 2022Q1

REPORT INFORMATION
  Report Type: Spontaneous
  Country: US (occurrence: None)
  Receive Date: 20220204
  Receipt Date: 20220204
  Transmission Date: 20220423
  Serious: No
  Sender: FDA-Public Use
  Company Number: 2022A021601

PATIENT
  Age: 65 Year
  Sex: Female
  Weight: 65.3 kg

DRUGS (3)
  1. BYDUREON BCISE [Suspect]
     Active Substance: EXENATIDE
     Indication: Type 2 diabetes mellitus
     Route: 058
  2. BYDUREON [Suspect]
     Active Substance: EXENATIDE
     Indication: Type 2 diabetes mellitus
     Route: 058
  3. BYETTA [Concomitant]
     Active Substance: EXENATIDE
     Indication: Type 2 diabetes mellitus
     Route: 065

REACTIONS (5)
  - Blood glucose increased [Recovered/Resolved]
  - Pain [Recovered/Resolved]
  - Drug ineffective [Recovered/Resolved]
  - Incorrect dose administered by device [Not Recovered/Not Resolved]
  - Device malfunction [Unknown]

NARRATIVE: CASE EVENT DATE: 20211201
